FAERS Safety Report 21010023 (Version 1)
Quarter: 2022Q2

REPORT INFORMATION
  Report Type: Spontaneous
  Country: US (occurrence: US)
  Receive Date: 20220627
  Receipt Date: 20220627
  Transmission Date: 20220721
  Serious: No
  Sender: FDA-Public Use
  Company Number: US-DENDREON PHARMACEUTICAL LLC-2021DEN000365

PATIENT

DRUGS (5)
  1. PROVENGE [Suspect]
     Active Substance: SIPULEUCEL-T
     Indication: Prostate cancer metastatic
     Dosage: DOSE 1
     Route: 042
     Dates: start: 201610, end: 201610
  2. ZYTIGA [Suspect]
     Active Substance: ABIRATERONE ACETATE
  3. INSPRA [Suspect]
     Active Substance: EPLERENONE
  4. XTANDI [Suspect]
     Active Substance: ENZALUTAMIDE
  5. VIVELLE-DOT [Suspect]
     Active Substance: ESTRADIOL

REACTIONS (1)
  - Disease progression [Unknown]

NARRATIVE: CASE EVENT DATE: 20180401
